FAERS Safety Report 6451992-0 (Version None)
Quarter: 2009Q4

REPORT INFORMATION
  Report Type: 
  Country: None (occurrence: None)
  Receive Date: 20091123
  Receipt Date: 20091118
  Transmission Date: 20100525
  Serious: Yes (Other)
  Sender: FDA-Public Use
  Company Number: US-WYE-H03867008

PATIENT
  Sex: Female

DRUGS (1)
  1. PREMPRO [Suspect]

REACTIONS (1)
  - NON-HODGKIN'S LYMPHOMA RECURRENT [None]
